FAERS Safety Report 9447727 (Version 1)
Quarter: 2013Q3

REPORT INFORMATION
  Report Type: Spontaneous
  Country: US (occurrence: US)
  Receive Date: 20130808
  Receipt Date: 20130808
  Transmission Date: 20140515
  Serious: Yes (Other)
  Sender: FDA-Public Use
  Company Number: US-ELI_LILLY_AND_COMPANY-US201307010496

PATIENT
  Sex: Female

DRUGS (1)
  1. CYMBALTA [Suspect]
     Indication: PAIN
     Dosage: 30 MG, BID
     Route: 065
     Dates: start: 2013, end: 2013

REACTIONS (7)
  - Multiple sclerosis [Unknown]
  - Systemic lupus erythematosus [Unknown]
  - Convulsion [Unknown]
  - Discomfort [Unknown]
  - Off label use [Unknown]
  - Drug ineffective [Unknown]
  - Drug withdrawal syndrome [Unknown]
